FAERS Safety Report 6076664-6 (Version None)
Quarter: 2009Q1

REPORT INFORMATION
  Report Type: 
  Country: None (occurrence: None)
  Receive Date: 20090213
  Receipt Date: 20090204
  Transmission Date: 20090719
  Serious: Yes (Hospitalization)
  Sender: FDA-Public Use
  Company Number: PHHY2009IT04577

PATIENT
  Sex: Female
  Weight: 37 kg

DRUGS (1)
  1. CGP 57148B T35717+ [Suspect]
     Indication: GASTROINTESTINAL STROMAL TUMOUR
     Dosage: 200 MG/DAY
     Route: 048
     Dates: start: 20070417, end: 20070915

REACTIONS (2)
  - ANAEMIA [None]
  - CACHEXIA [None]
